FAERS Safety Report 20484269 (Version 1)
Quarter: 2022Q1

REPORT INFORMATION
  Report Type: Spontaneous
  Country: NO (occurrence: NO)
  Receive Date: 20220217
  Receipt Date: 20220217
  Transmission Date: 20220423
  Serious: Yes (Other)
  Sender: FDA-Public Use
  Company Number: NO-009507513-2202NOR002900

PATIENT
  Sex: Male

DRUGS (1)
  1. INTERFERON ALFA-2B [Suspect]
     Active Substance: INTERFERON ALFA-2B
     Indication: Prophylaxis

REACTIONS (6)
  - Hypothalamo-pituitary disorder [Unknown]
  - General physical condition abnormal [Unknown]
  - Visual impairment [Unknown]
  - Headache [Unknown]
  - Mood altered [Unknown]
  - Product availability issue [Unknown]
